FAERS Safety Report 8456427-4 (Version None)
Quarter: 2012Q2

REPORT INFORMATION
  Report Type: 
  Country: None (occurrence: None)
  Receive Date: 20120621
  Receipt Date: 20120611
  Transmission Date: 20120825
  Serious: No
  Sender: FDA-Public Use
  Company Number: US-ASTRAZENECA-2012SE39134

PATIENT
  Age: 62 Year
  Sex: Female

DRUGS (2)
  1. NEXIUM [Suspect]
     Route: 048
  2. JANUVIA [Concomitant]

REACTIONS (3)
  - ARTHRITIS [None]
  - LIMB DISCOMFORT [None]
  - DIABETES MELLITUS [None]
